FAERS Safety Report 9844079 (Version 2)
Quarter: 2014Q1

REPORT INFORMATION
  Report Type: Spontaneous
  Country: GB (occurrence: GB)
  Receive Date: 20140127
  Receipt Date: 20140312
  Transmission Date: 20141002
  Serious: Yes (Hospitalization, Other)
  Sender: FDA-Public Use
  Company Number: GB-009507513-1401GBR010321

PATIENT
  Age: 33 Year
  Sex: Female

DRUGS (2)
  1. NEXPLANON [Suspect]
     Indication: CONTRACEPTION
     Dosage: LEFT ARM, EVERY 3 YEARS
     Route: 058
     Dates: start: 20130909
  2. NEXPLANON [Suspect]
     Dosage: UNK
     Route: 059

REACTIONS (8)
  - Abortion spontaneous [Unknown]
  - Evacuation of retained products of conception [Unknown]
  - Unintended pregnancy [Recovered/Resolved]
  - Medical device complication [Not Recovered/Not Resolved]
  - Device deployment issue [Not Recovered/Not Resolved]
  - Pain [Unknown]
  - Wound secretion [Unknown]
  - Device expulsion [Unknown]
